FAERS Safety Report 16093222 (Version 2)
Quarter: 2019Q1

REPORT INFORMATION
  Report Type: Spontaneous
  Country: PT (occurrence: PT)
  Receive Date: 20190320
  Receipt Date: 20190329
  Transmission Date: 20190418
  Serious: Yes (Hospitalization)
  Sender: FDA-Public Use
  Company Number: PT-ACCORD-113916

PATIENT
  Age: 75 Year
  Sex: Male

DRUGS (3)
  1. ENOXAPARIN [Suspect]
     Active Substance: ENOXAPARIN
     Indication: PULMONARY EMBOLISM
     Dosage: STRENGTH 100 MG TOOK 10 INJECTIONS
  2. SIMVASTATIN. [Suspect]
     Active Substance: SIMVASTATIN
     Indication: PRODUCT USED FOR UNKNOWN INDICATION
     Dosage: STRENGTH 10 MG,10 MG, UNK
  3. PERINDOPRIL/PERINDOPRIL ERBUMINE [Suspect]
     Active Substance: PERINDOPRIL ERBUMINE
     Indication: PRODUCT USED FOR UNKNOWN INDICATION
     Dosage: STRENGTH 10 MG

REACTIONS (6)
  - Tachypnoea [Unknown]
  - Wheezing [Unknown]
  - Tachycardia [Unknown]
  - Pulmonary embolism [Recovered/Resolved]
  - Chest pain [Unknown]
  - Dyspnoea [Unknown]
